FAERS Safety Report 7600690-6 (Version None)
Quarter: 2011Q3

REPORT INFORMATION
  Report Type: 
  Country: None (occurrence: None)
  Receive Date: 20110706
  Receipt Date: 20110706
  Transmission Date: 20111222
  Serious: Yes (Hospitalization, Other)
  Sender: FDA-Public Use
  Company Number: None

PATIENT
  Sex: Female
  Weight: 61.2356 kg

DRUGS (1)
  1. PROLIA [Suspect]
     Indication: OSTEOPOROSIS
     Dosage: INJECTION
     Dates: start: 20110209

REACTIONS (6)
  - BLOOD POTASSIUM ABNORMAL [None]
  - AMNESIA [None]
  - BLOOD CHLORIDE ABNORMAL [None]
  - VOMITING [None]
  - BLOOD SODIUM ABNORMAL [None]
  - DIARRHOEA [None]
